FAERS Safety Report 23514356 (Version 1)
Quarter: 2024Q1

REPORT INFORMATION
  Report Type: Spontaneous
  Country: US (occurrence: US)
  Receive Date: 20240212
  Receipt Date: 20240212
  Transmission Date: 20240409
  Serious: Yes (Other)
  Sender: FDA-Public Use
  Company Number: US-002147023-NVSC2024US028823

PATIENT

DRUGS (1)
  1. KYMRIAH [Suspect]
     Active Substance: TISAGENLECLEUCEL
     Indication: Acute lymphocytic leukaemia
     Dosage: 1 DOSAGE FORM, ONCE/SINGLE (3.1E6 CAR-POSITIVE T CELLS/ KG BODY WEIGHT)
     Route: 042
     Dates: start: 20240119, end: 20240119

REACTIONS (1)
  - B-cell type acute leukaemia [Unknown]
